FAERS Safety Report 9003432 (Version 1)
Quarter: 2013Q1

REPORT INFORMATION
  Report Type: Report from Study
  Country: US (occurrence: US)
  Receive Date: 20130108
  Receipt Date: 20130108
  Transmission Date: 20140127
  Serious: Yes (Other)
  Sender: FDA-Public Use
  Company Number: US-ABBOTT-12P-163-1029350-00

PATIENT
  Sex: Female
  Weight: 58.11 kg

DRUGS (2)
  1. HUMIRA [Suspect]
     Indication: CROHN^S DISEASE
     Route: 058
     Dates: start: 2006, end: 200804
  2. HUMIRA [Suspect]
     Route: 058
     Dates: start: 2009

REACTIONS (1)
  - Intestinal stenosis [Recovered/Resolved]
